FAERS Safety Report 7512415-3 (Version None)
Quarter: 2011Q2

REPORT INFORMATION
  Report Type: 
  Country: None (occurrence: None)
  Receive Date: 20110520
  Receipt Date: 20110505
  Transmission Date: 20111010
  Serious: Yes (Death)
  Sender: FDA-Public Use
  Company Number: GER/UKI/11/0018218

PATIENT
  Age: 21 Year

DRUGS (1)
  1. FLUOXETINE [Suspect]
     Indication: DEPRESSION
     Dosage: 20 MG, 1 IN 1 D, ORAL
     Route: 048
     Dates: start: 20100707, end: 20100712

REACTIONS (2)
  - ASPHYXIA [None]
  - COMPLETED SUICIDE [None]
